FAERS Safety Report 4605966-2 (Version None)
Quarter: 2005Q1

REPORT INFORMATION
  Report Type: 
  Country: None (occurrence: None)
  Receive Date: 20050116
  Receipt Date: 20050120
  Transmission Date: 20050727
  Serious: Yes (Other)
  Sender: FDA-Public Use
  Company Number: PHEH2005US00869

PATIENT
  Age: 76 Year
  Sex: Male
  Weight: 96.1 kg

DRUGS (12)
  1. GLEEVEC [Suspect]
     Indication: CHRONIC MYELOID LEUKAEMIA
     Dosage: 400 MG, QD; ORAL
     Route: 048
     Dates: start: 20050105
  2. LOPRESSOR [Concomitant]
  3. VASOTEC [Concomitant]
  4. GLUCOPHAGE [Concomitant]
  5. PRANDIN ^NOVO NORDISK^ (REPAGLINIDE) [Concomitant]
  6. ALLOPURINOL [Concomitant]
  7. DAYPRO [Concomitant]
  8. FLOMAX [Concomitant]
  9. ACETYLSALICYLIC ACID SRT [Concomitant]
  10. COUMADIN [Concomitant]
  11. NIACIN [Concomitant]
  12. MULTIVITAMIN PREPARATIONS WITH OR W/O MINERAL [Concomitant]

REACTIONS (6)
  - ABDOMINAL DISTENSION [None]
  - ABDOMINAL PAIN [None]
  - BLOOD AMYLASE INCREASED [None]
  - LIPASE INCREASED [None]
  - NAUSEA [None]
  - PANCREATITIS [None]
